FAERS Safety Report 10035460 (Version 3)
Quarter: 2014Q2

REPORT INFORMATION
  Report Type: Spontaneous
  Country: US (occurrence: US)
  Receive Date: 20140325
  Receipt Date: 20140509
  Transmission Date: 20141212
  Serious: Yes (Other)
  Sender: FDA-Public Use
  Company Number: US-PFIZER INC-2014083573

PATIENT
  Sex: Male

DRUGS (1)
  1. EFFEXOR XR [Suspect]
     Dosage: UNK
     Route: 048

REACTIONS (6)
  - Loss of consciousness [Unknown]
  - Product quality issue [Unknown]
  - Dizziness [Unknown]
  - Blood pressure increased [Unknown]
  - Fall [Unknown]
  - Head injury [Unknown]
